FAERS Safety Report 12785554 (Version 3)
Quarter: 2016Q4

REPORT INFORMATION
  Report Type: Spontaneous
  Country: NL (occurrence: NL)
  Receive Date: 20160927
  Receipt Date: 20161013
  Transmission Date: 20170207
  Serious: Yes (Other)
  Sender: FDA-Public Use
  Company Number: NL-TEVA-694908ROM

PATIENT
  Age: 43 Year
  Sex: Female

DRUGS (1)
  1. DESMOPRESSINE-ACETAAT TEVA 0,1 MG, TABLETTEN [Suspect]
     Active Substance: DESMOPRESSIN ACETATE
     Indication: PROPHYLAXIS
     Dosage: MAINTENANCE DOSE OF 0.1MG OR 0.2 MG ONCE DAILY
     Route: 048
     Dates: end: 20160916

REACTIONS (8)
  - Product substitution issue [Unknown]
  - Micturition disorder [Recovered/Resolved]
  - Pollakiuria [Recovered/Resolved]
  - Drug effect decreased [Unknown]
  - Overdose [Unknown]
  - Malaise [Unknown]
  - Blood sodium increased [Recovered/Resolved]
  - Daydreaming [Recovered/Resolved]

NARRATIVE: CASE EVENT DATE: 201609
